FAERS Safety Report 13202706 (Version 2)
Quarter: 2017Q2

REPORT INFORMATION
  Report Type: Report from Study
  Country: JP (occurrence: JP)
  Receive Date: 20170209
  Receipt Date: 20170614
  Transmission Date: 20170830
  Serious: Yes (Death, Hospitalization)
  Sender: FDA-Public Use
  Company Number: JP-AMGEN-JPNNI2017020982

PATIENT
  Age: 74 Year
  Sex: Male

DRUGS (1)
  1. DARBEPOETIN ALFA [Suspect]
     Active Substance: DARBEPOETIN ALFA
     Indication: PRODUCT USED FOR UNKNOWN INDICATION
     Dosage: UNK
     Route: 065
     Dates: start: 20150620, end: 20150711

REACTIONS (3)
  - Gallbladder disorder [Recovering/Resolving]
  - Death [Fatal]
  - Pleural effusion [Recovering/Resolving]

NARRATIVE: CASE EVENT DATE: 20151017
